FAERS Safety Report 6165127-5 (Version None)
Quarter: 2009Q2

REPORT INFORMATION
  Report Type: 
  Country: None (occurrence: None)
  Receive Date: 20090421
  Receipt Date: 20090421
  Transmission Date: 20091009
  Serious: Yes (Hospitalization)
  Sender: FDA-Public Use
  Company Number: None

PATIENT
  Age: 46 Year
  Sex: Female
  Weight: 92.4 kg

DRUGS (18)
  1. ADRIAMYCIN RDF [Suspect]
     Indication: BREAST CANCER
     Dosage: 60MG/M2 EVERY 3 WEEKS IV
     Route: 042
     Dates: start: 20090331, end: 20090331
  2. CYCLOPHOSPHAMIDE [Suspect]
     Indication: BREAST CANCER
     Dosage: 600MG/M2 EVERY 3 WEEKS IV
     Route: 042
     Dates: start: 20090331, end: 20090331
  3. COLACE [Concomitant]
  4. MICONAZOLE NITRATE [Concomitant]
  5. BENADRYL [Concomitant]
  6. PERCOCET [Concomitant]
  7. ATIVAN [Concomitant]
  8. TYL  ES [Concomitant]
  9. COMPAZINE [Concomitant]
  10. DECADRON [Concomitant]
  11. LORAZEPAM [Concomitant]
  12. MAGIC MOUTHWASH [Concomitant]
  13. ZOFRAN [Concomitant]
  14. ACYLOVIR [Concomitant]
  15. FORTAZ [Concomitant]
  16. VANCOMYCIN HCL [Concomitant]
  17. DILAUDID [Concomitant]
  18. IVF [Concomitant]

REACTIONS (11)
  - BLOOD URINE PRESENT [None]
  - CHILLS [None]
  - DYSPNOEA [None]
  - FATIGUE [None]
  - HAEMORRHOIDS [None]
  - HEADACHE [None]
  - MENINGITIS [None]
  - NO THERAPEUTIC RESPONSE [None]
  - OROPHARYNGEAL PAIN [None]
  - PYREXIA [None]
  - TONGUE DISORDER [None]
